FAERS Safety Report 15250773 (Version 6)
Quarter: 2018Q3

REPORT INFORMATION
  Report Type: Report from Study
  Country: CA (occurrence: CA)
  Receive Date: 20180807
  Receipt Date: 20180927
  Transmission Date: 20181010
  Serious: Yes (Hospitalization, Other)
  Sender: FDA-Public Use
  Company Number: PHHY2012CA078125

PATIENT
  Age: 59 Year
  Sex: Male

DRUGS (3)
  1. FUROSEMIDE. [Suspect]
     Active Substance: FUROSEMIDE
     Indication: PULMONARY OEDEMA
     Dosage: 20 MG, QD
     Route: 048
     Dates: start: 20180726
  2. FUROSEMIDE. [Suspect]
     Active Substance: FUROSEMIDE
     Indication: LOCALISED OEDEMA
  3. SANDOSTATIN LAR DEPOT [Suspect]
     Active Substance: OCTREOTIDE ACETATE
     Indication: METASTATIC CARCINOID TUMOUR
     Dosage: 30 MG, QMO (EVERY 4 WEEKS)
     Route: 030
     Dates: start: 20120119

REACTIONS (17)
  - Body temperature decreased [Unknown]
  - Blood pressure increased [Unknown]
  - Nasopharyngitis [Unknown]
  - Hypotension [Unknown]
  - Pulmonary oedema [Unknown]
  - Platelet count decreased [Recovering/Resolving]
  - Dyspnoea [Unknown]
  - Ascites [Unknown]
  - Hypotension [Unknown]
  - Ear pain [Unknown]
  - Fatigue [Unknown]
  - Respiratory rate decreased [Unknown]
  - Blood pressure diastolic increased [Unknown]
  - Needle issue [Unknown]
  - Food poisoning [Unknown]
  - Blood pressure systolic decreased [Unknown]
  - Heart rate increased [Unknown]

NARRATIVE: CASE EVENT DATE: 20120831
